FAERS Safety Report 21611497 (Version 4)
Quarter: 2022Q4

REPORT INFORMATION
  Report Type: Report from Study
  Country: CN (occurrence: CN)
  Receive Date: 20221117
  Receipt Date: 20221228
  Transmission Date: 20230113
  Serious: Yes (Death, Life-Threatening, Hospitalization, Other)
  Sender: FDA-Public Use
  Company Number: CN-BRISTOL-MYERS SQUIBB COMPANY-2022-133943

PATIENT
  Age: 54 Year
  Sex: Male
  Weight: 54 kg

DRUGS (5)
  1. PEMETREXED DISODIUM [Suspect]
     Active Substance: PEMETREXED DISODIUM
     Indication: Non-small cell lung cancer
     Dosage: LAST DOSE OF 778 MG ON 24-AUG-2022
     Dates: start: 20220705, end: 20220705
  2. PEMETREXED DISODIUM [Suspect]
     Active Substance: PEMETREXED DISODIUM
     Dosage: LAST DOSE OF 778 MG ON 24-AUG-2022
     Dates: start: 20220824, end: 20220824
  3. CISPLATIN [Suspect]
     Active Substance: CISPLATIN
     Indication: Non-small cell lung cancer
     Dosage: LAST DOSE ON 24-AUG-2022
     Dates: start: 20220705, end: 20220824
  4. FOLIC ACID [Concomitant]
     Active Substance: FOLIC ACID
     Indication: Prophylaxis
     Dosage: DAILY; PER DAY
     Route: 048
     Dates: start: 20220618, end: 20221107
  5. SANGUISORBA OFFICINALIS SLICES [Concomitant]
     Indication: Prophylaxis
     Dosage: 3 TIMES PER DAY
     Route: 048
     Dates: start: 20220915, end: 20221107

REACTIONS (2)
  - Immune-mediated lung disease [Fatal]
  - Pneumonia [Fatal]

NARRATIVE: CASE EVENT DATE: 20221107
